FAERS Safety Report 6204538-6 (Version None)
Quarter: 2009Q2

REPORT INFORMATION
  Report Type: 
  Country: None (occurrence: None)
  Receive Date: 20090527
  Receipt Date: 20090413
  Transmission Date: 20091009
  Serious: Yes (Life-Threatening, Hospitalization)
  Sender: FDA-Public Use
  Company Number: US-JNJFOC-20090403100

PATIENT
  Age: 32 Year
  Sex: Male

DRUGS (1)
  1. ULTRAM [Suspect]
     Indication: SUICIDAL BEHAVIOUR
     Route: 048

REACTIONS (4)
  - CONVULSION [None]
  - HYPOTENSION [None]
  - OVERDOSE [None]
  - SUICIDAL BEHAVIOUR [None]
